FAERS Safety Report 21771377 (Version 1)
Quarter: 2022Q4

REPORT INFORMATION
  Report Type: Spontaneous
  Country: US (occurrence: None)
  Receive Date: 20221222
  Receipt Date: 20221222
  Transmission Date: 20230113
  Serious: No
  Sender: FDA-Public Use
  Company Number: None

PATIENT
  Age: 47 Year
  Sex: Male
  Weight: 71.58 kg

DRUGS (18)
  1. ETOPOSIDE [Suspect]
     Active Substance: ETOPOSIDE
     Indication: Brain neoplasm malignant
     Dosage: OTHER FREQUENCY : 2W, 1W OFF;?
     Route: 048
  2. AMARYL [Concomitant]
     Active Substance: GLIMEPIRIDE
  3. ASPIRIN [Concomitant]
     Active Substance: ASPIRIN
  4. BYSTOLIC [Concomitant]
     Active Substance: NEBIVOLOL HYDROCHLORIDE
  5. CENTRUM [Concomitant]
  6. COLACE [Concomitant]
     Active Substance: DOCUSATE SODIUM
  7. CRESTOR [Concomitant]
     Active Substance: ROSUVASTATIN CALCIUM
  8. JARDIANCE [Concomitant]
     Active Substance: EMPAGLIFLOZIN
  9. KEPPRA [Concomitant]
     Active Substance: LEVETIRACETAM
  10. MEMANTINE [Concomitant]
     Active Substance: MEMANTINE
  11. METFORMIN [Concomitant]
     Active Substance: METFORMIN HYDROCHLORIDE
  12. ONDANSETRON [Concomitant]
     Active Substance: ONDANSETRON
  13. OXYCODONE [Concomitant]
     Active Substance: OXYCODONE
  14. OZEMPIC [Concomitant]
     Active Substance: SEMAGLUTIDE
  15. PEPCID [Concomitant]
     Active Substance: FAMOTIDINE
  16. REMERON [Concomitant]
     Active Substance: MIRTAZAPINE
  17. VASCEPA [Concomitant]
     Active Substance: ICOSAPENT ETHYL
  18. VITAMIN D [Concomitant]
     Active Substance: VITAMIN D NOS

REACTIONS (1)
  - Disease progression [None]
